FAERS Safety Report 23251001 (Version 4)
Quarter: 2024Q1

REPORT INFORMATION
  Report Type: Spontaneous
  Country: GB (occurrence: GB)
  Receive Date: 20231201
  Receipt Date: 20240319
  Transmission Date: 20240409
  Serious: Yes (Hospitalization)
  Sender: FDA-Public Use
  Company Number: GB-ACRAF SpA-2023-032656

PATIENT

DRUGS (1)
  1. XCOPRI [Suspect]
     Active Substance: CENOBAMATE
     Indication: Epilepsy
     Dosage: UNK
     Route: 048
     Dates: end: 20231117

REACTIONS (7)
  - Hyperhidrosis [Recovering/Resolving]
  - Feeling hot [Recovering/Resolving]
  - Chest pain [Recovering/Resolving]
  - Menopause [Recovering/Resolving]
  - Palpitations [Recovering/Resolving]
  - Malaise [Not Recovered/Not Resolved]
  - Weight decreased [Unknown]
